FAERS Safety Report 5661819-2 (Version None)
Quarter: 2008Q1

REPORT INFORMATION
  Report Type: 
  Country: None (occurrence: None)
  Receive Date: 20080312
  Receipt Date: 20080226
  Transmission Date: 20080703
  Serious: Yes (Hospitalization, Disabling)
  Sender: FDA-Public Use
  Company Number: US-MERCK-0710USA04000

PATIENT
  Age: 75 Year
  Sex: Female

DRUGS (3)
  1. FOSAMAX [Suspect]
     Indication: OSTEOPOROSIS PROPHYLAXIS
     Route: 048
     Dates: start: 19970919, end: 20020318
  2. FOSAMAX [Suspect]
     Route: 048
     Dates: start: 20020318, end: 20051002
  3. [THERAPY UNSPECIFIED] [Concomitant]
     Route: 065
     Dates: start: 19900101, end: 20060503

REACTIONS (24)
  - ABSCESS [None]
  - ABSCESS ORAL [None]
  - ADJUSTMENT DISORDER [None]
  - BACK PAIN [None]
  - BLOOD CHOLESTEROL INCREASED [None]
  - BONE EROSION [None]
  - CATHETER RELATED INFECTION [None]
  - CELLULITIS [None]
  - CHEST PAIN [None]
  - CHRONIC OBSTRUCTIVE PULMONARY DISEASE [None]
  - DERMATITIS ALLERGIC [None]
  - DEVICE RELATED INFECTION [None]
  - DIARRHOEA [None]
  - DIZZINESS [None]
  - HYPERLIPIDAEMIA [None]
  - HYPOTENSION [None]
  - JAW DISORDER [None]
  - NEURALGIA [None]
  - OSTEITIS [None]
  - OSTEOMYELITIS [None]
  - OSTEONECROSIS [None]
  - TEMPOROMANDIBULAR JOINT SYNDROME [None]
  - TYPE 2 DIABETES MELLITUS [None]
  - VAGINAL INFECTION [None]
